FAERS Safety Report 9193300 (Version 1)
Quarter: 2013Q1

REPORT INFORMATION
  Report Type: Spontaneous
  Country: US (occurrence: None)
  Receive Date: 20130325
  Receipt Date: 20130325
  Transmission Date: 20140127
  Serious: Yes (Hospitalization)
  Sender: FDA-Public Use
  Company Number: None

PATIENT
  Age: 59 Year
  Sex: Female
  Weight: 30.66 kg

DRUGS (17)
  1. HYDROXYCHLOROQUINE SULFATE [Suspect]
     Indication: PLASMA CELL MYELOMA
     Route: 048
     Dates: start: 20130302
  2. ACYCLOVIR [Concomitant]
  3. ALBUTEROL [Concomitant]
  4. ALPRAZOLAM [Concomitant]
  5. CALCIUM CARBONATE [Concomitant]
  6. CARBOXYMETHYLCELLULOSE REFRESH CELLUVISC- 1% OPHTHALMIC DROPPERETTE [Concomitant]
  7. CARVEDILOL [Concomitant]
  8. CYCLOSPORINE RESTASIS 0.05% OPHTHALMIC DROPPERETTE [Concomitant]
  9. ENOXAPARIN LOVENOX [Concomitant]
  10. FEXOFENADINE [Concomitant]
  11. FLUOXETINE HCL-PROZAC ORAL [Concomitant]
  12. FUROSEMIDE [Concomitant]
  13. GABAPENTIN [Concomitant]
  14. HYDROMORPHONE [Concomitant]
  15. LEVOFLOXACIN [Concomitant]
  16. LISINOPRIL [Concomitant]
  17. MOMETASONE FUROATE NASONEX NASL [Concomitant]

REACTIONS (6)
  - Syncope [None]
  - Mental status changes [None]
  - Dizziness [None]
  - Lethargy [None]
  - Somnolence [None]
  - Confusional state [None]
